FAERS Safety Report 23636179 (Version 7)
Quarter: 2024Q4

REPORT INFORMATION
  Report Type: Report from Study
  Country: CA (occurrence: CA)
  Receive Date: 20240315
  Receipt Date: 20241015
  Transmission Date: 20250115
  Serious: Yes (Hospitalization, Other)
  Sender: NOVARTIS
  Company Number: CA-002147023-NVSC2024CA055572

PATIENT
  Age: 72 Year
  Sex: Male

DRUGS (3)
  1. SANDOSTATIN LAR DEPOT [Suspect]
     Active Substance: OCTREOTIDE ACETATE
     Indication: Acromegaly
     Dosage: 20 MG, QMO
     Route: 030
     Dates: start: 20071030
  2. SANDOSTATIN LAR DEPOT [Suspect]
     Active Substance: OCTREOTIDE ACETATE
     Dosage: 20 MG, QMO
     Route: 030
     Dates: start: 20240212
  3. SANDOSTATIN LAR DEPOT [Suspect]
     Active Substance: OCTREOTIDE ACETATE
     Dosage: 20 MG, QMO
     Route: 030
     Dates: start: 20240826

REACTIONS (29)
  - Feeding disorder [Unknown]
  - Condition aggravated [Unknown]
  - Illness [Unknown]
  - Syncope [Unknown]
  - Loss of consciousness [Unknown]
  - Fall [Unknown]
  - Eye contusion [Unknown]
  - Influenza like illness [Unknown]
  - Ear congestion [Unknown]
  - Nasal congestion [Unknown]
  - Malaise [Unknown]
  - Vomiting [Unknown]
  - Dizziness [Unknown]
  - Nausea [Unknown]
  - Inner ear disorder [Unknown]
  - Balance disorder [Unknown]
  - Blood testosterone decreased [Unknown]
  - Head injury [Unknown]
  - Nasopharyngitis [Unknown]
  - Pyrexia [Unknown]
  - Hyperhidrosis [Unknown]
  - Flank pain [Unknown]
  - Cough [Unknown]
  - Asthenia [Unknown]
  - Weight decreased [Unknown]
  - Nocturia [Unknown]
  - Heart rate increased [Unknown]
  - Diarrhoea [Unknown]
  - Pain [Unknown]

NARRATIVE: CASE EVENT DATE: 20240801
